FAERS Safety Report 7713445-9 (Version None)
Quarter: 2011Q3

REPORT INFORMATION
  Report Type: 
  Country: None (occurrence: None)
  Receive Date: 20110826
  Receipt Date: 20110816
  Transmission Date: 20111222
  Serious: No
  Sender: FDA-Public Use
  Company Number: US-B.I. PHARMACEUTICALS,INC./RIDGEFIELD-2011-BP-18075BP

PATIENT
  Sex: Female

DRUGS (11)
  1. ARTHROTEC [Concomitant]
     Indication: OSTEOARTHRITIS
  2. LEXAPRO [Concomitant]
     Indication: DEPRESSION
  3. PRADAXA [Suspect]
     Indication: ATRIAL FIBRILLATION
     Dosage: 300 MG
     Route: 048
     Dates: start: 20110301, end: 20110705
  4. OXYBUTYNIN [Concomitant]
     Indication: HYPERTONIC BLADDER
  5. DIGOXIN [Concomitant]
     Indication: ATRIAL FIBRILLATION
  6. OXYBUTYNIN [Concomitant]
  7. DYAZIDE [Concomitant]
     Indication: HYPERTENSION
  8. LEVOTHYROXINE SODIUM [Concomitant]
     Indication: HYPOTHYROIDISM
  9. NORVASC [Concomitant]
  10. THYROID TAB [Concomitant]
  11. NEURONTIN [Concomitant]

REACTIONS (4)
  - DIARRHOEA [None]
  - VOMITING [None]
  - FLATULENCE [None]
  - ABDOMINAL PAIN [None]
